FAERS Safety Report 9523119 (Version 1)
Quarter: 2013Q3

REPORT INFORMATION
  Report Type: Spontaneous
  Country: RU (occurrence: RU)
  Receive Date: 20130913
  Receipt Date: 20130913
  Transmission Date: 20140515
  Serious: Yes (Life-Threatening, Hospitalization, Other)
  Sender: FDA-Public Use
  Company Number: RU-ASTRAZENECA-2013SE68885

PATIENT
  Age: 61 Year
  Sex: Male
  Weight: 106 kg

DRUGS (8)
  1. BRILINTA [Suspect]
     Indication: ACUTE CORONARY SYNDROME
     Route: 048
     Dates: start: 201301, end: 201308
  2. CLEXANE [Concomitant]
  3. INSULIN [Concomitant]
  4. NEBILET [Concomitant]
  5. FIZIOTENZ [Concomitant]
  6. VALSARTAN [Concomitant]
  7. LASIX [Concomitant]
  8. TORASEMIDE [Concomitant]

REACTIONS (1)
  - Myocardial infarction [Recovering/Resolving]
